FAERS Safety Report 5912450-2 (Version None)
Quarter: 2008Q4

REPORT INFORMATION
  Report Type: 
  Country: None (occurrence: None)
  Receive Date: 20081008
  Receipt Date: 20080929
  Transmission Date: 20090506
  Serious: Yes (Other)
  Sender: FDA-Public Use
  Company Number: US-ELI_LILLY_AND_COMPANY-US200809006484

PATIENT
  Sex: Male

DRUGS (2)
  1. CIALIS [Suspect]
  2. TOPIRAMATE [Concomitant]
     Indication: CONVULSION PROPHYLAXIS
     Dosage: 100 MG, 2/D
     Route: 048

REACTIONS (2)
  - BLOOD PRESSURE INCREASED [None]
  - CONVULSION [None]
